FAERS Safety Report 18584608 (Version 1)
Quarter: 2020Q4

REPORT INFORMATION
  Report Type: Spontaneous
  Country: US (occurrence: US)
  Receive Date: 20201203
  Receipt Date: 20201203
  Transmission Date: 20210114
  Serious: Yes (Hospitalization)
  Sender: FDA-Public Use
  Company Number: None

PATIENT
  Age: 76 Year
  Sex: Male

DRUGS (2)
  1. ENTECAVIR 1MG [Suspect]
     Active Substance: ENTECAVIR
     Indication: CHRONIC HEPATITIS B
     Route: 048
     Dates: start: 20201110
  2. ENTECAVIR 1MG [Suspect]
     Active Substance: ENTECAVIR
     Indication: LIVER TRANSPLANT
     Route: 048
     Dates: start: 20201110

REACTIONS (1)
  - COVID-19 [None]

NARRATIVE: CASE EVENT DATE: 202011
